FAERS Safety Report 7212171-2 (Version None)
Quarter: 2010Q4

REPORT INFORMATION
  Report Type: 
  Country: None (occurrence: None)
  Receive Date: 20101227
  Receipt Date: 20101214
  Transmission Date: 20110411
  Serious: Yes (Other)
  Sender: FDA-Public Use
  Company Number: 783028

PATIENT
  Age: 14 Year
  Sex: Female

DRUGS (3)
  1. CYTARABINE [Suspect]
     Indication: ACUTE MYELOID LEUKAEMIA
     Dosage: 100 MG/M^2 TWICE DAILY, 1 G/M^2 TWICE DAILY, 3 G/M^2 TWICE DAILY ON DAYS 1,2,8 AND 9
  2. (GEMTUZUMAB) [Concomitant]
  3. FLUOROMETHOLONE [Concomitant]

REACTIONS (3)
  - DRUG TOXICITY [None]
  - EPISCLERITIS [None]
  - IRIDOCYCLITIS [None]
